FAERS Safety Report 25408482 (Version 2)
Quarter: 2025Q2

REPORT INFORMATION
  Report Type: Report from Study
  Country: US (occurrence: US)
  Receive Date: 20250606
  Receipt Date: 20250625
  Transmission Date: 20250717
  Serious: Yes (Hospitalization, Other)
  Sender: NOVARTIS
  Company Number: US-002147023-NVSC2022US080705

PATIENT
  Age: 0 Year
  Sex: Male
  Weight: 11 kg

DRUGS (12)
  1. ZOLGENSMA [Suspect]
     Active Substance: ONASEMNOGENE ABEPARVOVEC-XIOI
     Indication: Spinal muscular atrophy
     Route: 042
     Dates: start: 20200916, end: 20200916
  2. PREDNISOLONE [Concomitant]
     Active Substance: PREDNISOLONE
     Indication: Product used for unknown indication
     Route: 065
     Dates: start: 20200913, end: 20200916
  3. PREDNISOLONE [Concomitant]
     Active Substance: PREDNISOLONE
     Route: 065
     Dates: start: 20200916, end: 20201006
  4. PREDNISOLONE [Concomitant]
     Active Substance: PREDNISOLONE
     Route: 065
     Dates: start: 20201015, end: 20201021
  5. PREDNISOLONE [Concomitant]
     Active Substance: PREDNISOLONE
     Route: 065
     Dates: start: 20201022, end: 20201113
  6. PREDNISOLONE [Concomitant]
     Active Substance: PREDNISOLONE
     Route: 065
     Dates: start: 20201114, end: 20201218
  7. PREDNISOLONE [Concomitant]
     Active Substance: PREDNISOLONE
     Route: 065
     Dates: start: 20201219, end: 20201225
  8. PREDNISOLONE [Concomitant]
     Active Substance: PREDNISOLONE
     Route: 065
     Dates: start: 20201007, end: 20201014
  9. FAMOTIDINE [Concomitant]
     Active Substance: FAMOTIDINE
     Indication: Prophylaxis
     Route: 065
     Dates: start: 20200916, end: 20201006
  10. SODIUM CHLORIDE [Concomitant]
     Active Substance: SODIUM CHLORIDE
     Indication: Spinal muscular atrophy
     Route: 055
     Dates: start: 20200919, end: 20200919
  11. BUDESONIDE [Concomitant]
     Active Substance: BUDESONIDE
     Indication: Spinal muscular atrophy
     Route: 055
     Dates: start: 20200919, end: 20201030
  12. ALBUTEROL [Concomitant]
     Active Substance: ALBUTEROL
     Indication: Product used for unknown indication
     Route: 065
     Dates: start: 20200919, end: 20200922

REACTIONS (23)
  - Acute respiratory failure [Recovered/Resolved]
  - Acute respiratory failure [Recovered/Resolved]
  - Tachycardia [Unknown]
  - Dyspnoea [Recovered/Resolved]
  - Hypoxia [Recovered/Resolved]
  - COVID-19 [Recovered/Resolved]
  - Cough [Recovered/Resolved]
  - Nasal congestion [Recovered/Resolved]
  - Pneumonia [Recovered/Resolved]
  - Pneumonia [Recovered/Resolved]
  - Pneumonia [Recovered/Resolved]
  - Syncope [Unknown]
  - Aspartate aminotransferase increased [Recovered/Resolved]
  - Alanine aminotransferase increased [Recovered/Resolved]
  - Cryptorchism [Recovered/Resolved]
  - Viral upper respiratory tract infection [Recovered/Resolved]
  - Respiratory syncytial virus infection [Recovered/Resolved]
  - Constipation [Recovered/Resolved]
  - Pharyngitis streptococcal [Recovered/Resolved]
  - Dizziness [Unknown]
  - Oedema [Unknown]
  - Hypotension [Unknown]
  - Blood bilirubin decreased [Recovered/Resolved]

NARRATIVE: CASE EVENT DATE: 20200916
